FAERS Safety Report 9563865 (Version 1)
Quarter: 2013Q3

REPORT INFORMATION
  Report Type: Spontaneous
  Country: US (occurrence: None)
  Receive Date: 20130926
  Receipt Date: 20130926
  Transmission Date: 20140515
  Serious: Yes (Disabling)
  Sender: FDA-Public Use
  Company Number: None

PATIENT
  Age: 62 Year
  Sex: Female

DRUGS (2)
  1. CIPRO [Suspect]
     Indication: SINUS DISORDER
     Dates: start: 20100101, end: 20101230
  2. CIPRO [Suspect]
     Indication: BRONCHITIS
     Dates: start: 20100101, end: 20101230

REACTIONS (5)
  - Diarrhoea [None]
  - Pain in extremity [None]
  - Pain in extremity [None]
  - Hypoaesthesia [None]
  - Intervertebral disc protrusion [None]
